FAERS Safety Report 23332031 (Version 1)
Quarter: 2023Q4

REPORT INFORMATION
  Report Type: Spontaneous
  Country: AL (occurrence: None)
  Receive Date: 20231222
  Receipt Date: 20231222
  Transmission Date: 20240110
  Serious: Yes (Other)
  Sender: FDA-Public Use
  Company Number: 2023A266036

PATIENT
  Sex: Female

DRUGS (1)
  1. LYNPARZA [Suspect]
     Active Substance: OLAPARIB
     Route: 048
     Dates: start: 202301

REACTIONS (3)
  - Neoplasm [Unknown]
  - Inability to afford medication [Not Recovered/Not Resolved]
  - Product availability issue [Not Recovered/Not Resolved]
